FAERS Safety Report 8782884 (Version 1)
Quarter: 2012Q4

REPORT INFORMATION
  Report Type: Report from Study
  Country: US (occurrence: US)
  Receive Date: 20120913
  Receipt Date: 20120913
  Transmission Date: 20130627
  Serious: No
  Sender: FDA-Public Use
  Company Number: US-VERTEX PHARMACEUTICAL INC.-AE-2012-009862

PATIENT
  Age: 43 Year
  Sex: Male
  Weight: 105.45 kg

DRUGS (6)
  1. INCIVEK [Suspect]
     Indication: HEPATITIS C
     Route: 048
  2. PEGINTRON KIT [Concomitant]
     Indication: HEPATITIS C
  3. RIBAVIRIN [Concomitant]
     Indication: HEPATITIS C
  4. VITAMINB12 [Concomitant]
     Route: 058
  5. MULTIVITAMIN [Concomitant]
  6. TYLENOL [Concomitant]

REACTIONS (5)
  - Chest pain [Unknown]
  - Dry skin [Unknown]
  - Rash [Unknown]
  - Anaemia [Unknown]
  - Pruritus [Unknown]
